FAERS Safety Report 4647975-3 (Version None)
Quarter: 2005Q2

REPORT INFORMATION
  Report Type: 
  Country: None (occurrence: None)
  Receive Date: 20050331
  Receipt Date: 20050209
  Transmission Date: 20051028
  Serious: No
  Sender: FDA-Public Use
  Company Number: 05P-163-0289965-00

PATIENT
  Age: 35 Year
  Sex: Female
  Weight: 56.6996 kg

DRUGS (5)
  1. HUMIRA [Suspect]
     Indication: RHEUMATOID ARTHRITIS
     Dosage: 40 MG, 1IN 1 2 WK, SUBCUTANEOUS
     Route: 058
     Dates: start: 20040801
  2. HYDROXYCHLOROQUINE PHOSPHATE [Concomitant]
  3. AZATHIOPRINE [Concomitant]
  4. LANSOPRAZOLE [Concomitant]
  5. NABUMETONE [Concomitant]

REACTIONS (5)
  - INJECTION SITE HAEMORRHAGE [None]
  - INJECTION SITE PAIN [None]
  - INJECTION SITE REACTION [None]
  - INJECTION SITE URTICARIA [None]
  - URTICARIA [None]
